FAERS Safety Report 9289266 (Version 1)
Quarter: 2013Q2

REPORT INFORMATION
  Report Type: Spontaneous
  Country: US (occurrence: US)
  Receive Date: 20130514
  Receipt Date: 20130514
  Transmission Date: 20140414
  Serious: No
  Sender: FDA-Public Use
  Company Number: US-ABBOTT-12P-163-0938393-00

PATIENT
  Sex: Female
  Weight: 133.93 kg

DRUGS (8)
  1. PROMETRIUM [Suspect]
     Indication: POLYCYSTIC OVARIES
     Dosage: DAYS 1-10 OF EACH MONTH AT HOUR OF SLEEP
     Route: 048
  2. METFORMIN ER [Concomitant]
     Indication: INSULIN RESISTANCE
  3. LISINOPRIL [Concomitant]
     Indication: HYPERTENSION
  4. REGLAN [Concomitant]
     Indication: IMPAIRED GASTRIC EMPTYING
  5. NEXIUM [Concomitant]
     Indication: GASTROOESOPHAGEAL REFLUX DISEASE
  6. FENOFIBRATE [Concomitant]
     Indication: BLOOD TRIGLYCERIDES INCREASED
  7. OXYBUTENIN [Concomitant]
     Indication: HYPERTONIC BLADDER
  8. NITROFURANTOIN [Concomitant]
     Indication: URINARY TRACT INFECTION

REACTIONS (3)
  - Amenorrhoea [Not Recovered/Not Resolved]
  - Off label use [Unknown]
  - Drug ineffective [Unknown]
